FAERS Safety Report 6861496-9 (Version None)
Quarter: 2010Q3

REPORT INFORMATION
  Report Type: 
  Country: None (occurrence: None)
  Receive Date: 20100720
  Receipt Date: 20100720
  Transmission Date: 20110219
  Serious: Yes (Other)
  Sender: FDA-Public Use
  Company Number: None

PATIENT
  Age: 77 Year
  Sex: Male

DRUGS (1)
  1. PHENYTOIN SODIUM CAP [Suspect]
     Indication: CONVULSION
     Dosage: 1 TID PO SINCE 2006
     Route: 048
     Dates: start: 20060101

REACTIONS (3)
  - ANTICONVULSANT DRUG LEVEL DECREASED [None]
  - PRODUCT FORMULATION ISSUE [None]
  - PRODUCT MEASURED POTENCY ISSUE [None]
